FAERS Safety Report 25745323 (Version 1)
Quarter: 2025Q3

REPORT INFORMATION
  Report Type: Report from Study
  Country: US (occurrence: US)
  Receive Date: 20250901
  Receipt Date: 20250901
  Transmission Date: 20251020
  Serious: Yes (Other)
  Sender: TAKEDA
  Company Number: US-TAKEDA-2025TUS075948

PATIENT
  Sex: Male
  Weight: 50 kg

DRUGS (1)
  1. HUMAN IMMUNOGLOBULIN G [Suspect]
     Active Substance: HUMAN IMMUNOGLOBULIN G
     Indication: Congenital hypogammaglobulinaemia
     Dosage: 35 GRAM, Q3WEEKS

REACTIONS (3)
  - Blindness [Unknown]
  - Eye injury [Unknown]
  - Eye pain [Unknown]
